FAERS Safety Report 9811459 (Version 1)
Quarter: 2014Q1

REPORT INFORMATION
  Report Type: Spontaneous
  Country: US (occurrence: US)
  Receive Date: 20140110
  Receipt Date: 20140110
  Transmission Date: 20141002
  Serious: Yes (Other)
  Sender: FDA-Public Use
  Company Number: US-SANOFI-AVENTIS-2013SA044724

PATIENT
  Age: 59 Year
  Sex: Male
  Weight: 84 kg

DRUGS (15)
  1. PLAVIX [Suspect]
     Indication: PERCUTANEOUS CORONARY INTERVENTION
     Dosage: POST PROCEDURE DOSE
  2. PLAVIX [Suspect]
     Indication: PERCUTANEOUS CORONARY INTERVENTION
     Dosage: LOADING DOSE
     Dates: end: 201106
  3. ANGIOMAX [Suspect]
     Dosage: BOLUS DOSE
     Dates: start: 20110527, end: 20110527
  4. ASPIRIN [Suspect]
     Dosage: POST-PROCEDURE DOSE
  5. ASPIRIN [Suspect]
     Dosage: LOADING DOSE
  6. BLINDED THERAPY [Suspect]
     Indication: PERCUTANEOUS CORONARY INTERVENTION
     Dosage: RECEIVED A BOLUS DOSE OF BLINDED STUDY DRUG 62 ML FOLLOWED BY AN INFUSION DOSE 49 ML.
     Dates: start: 20110527, end: 20110527
  7. DRUG ELUTING STENT [Suspect]
  8. TADALAFIL [Concomitant]
  9. IBUPROFEN [Concomitant]
  10. NIACIN [Concomitant]
  11. ASPIRIN [Concomitant]
  12. FISH OIL [Concomitant]
  13. VITAMIN E [Concomitant]
  14. AMLODIPINE [Concomitant]
  15. RANITIDINE [Concomitant]

REACTIONS (1)
  - Subdural haematoma [Not Recovered/Not Resolved]
